FAERS Safety Report 18308392 (Version 1)
Quarter: 2020Q3

REPORT INFORMATION
  Report Type: Spontaneous
  Country: US (occurrence: US)
  Receive Date: 20200924
  Receipt Date: 20200924
  Transmission Date: 20201103
  Serious: No
  Sender: FDA-Public Use
  Company Number: US-ALVOGEN-2020-ALVOGEN-108025

PATIENT
  Sex: Female
  Weight: 79.12 kg

DRUGS (7)
  1. BACITRACIN ZINC. [Suspect]
     Active Substance: BACITRACIN ZINC
     Indication: PRODUCT USED FOR UNKNOWN INDICATION
  2. GRAMICIDIN [Suspect]
     Active Substance: GRAMICIDIN
     Indication: PRODUCT USED FOR UNKNOWN INDICATION
  3. POLYMYXIN B SULFATE. [Suspect]
     Active Substance: POLYMYXIN B SULFATE
     Indication: PRODUCT USED FOR UNKNOWN INDICATION
  4. LINCOMYCIN HYDROCHLORIDE. [Suspect]
     Active Substance: LINCOMYCIN HYDROCHLORIDE
     Indication: PRODUCT USED FOR UNKNOWN INDICATION
  5. CLINDAMYCIN. [Suspect]
     Active Substance: CLINDAMYCIN
     Indication: PRODUCT USED FOR UNKNOWN INDICATION
  6. GABAPENTIN. [Suspect]
     Active Substance: GABAPENTIN
     Indication: PRODUCT USED FOR UNKNOWN INDICATION
  7. TRAMADOL HYDROCHLORIDE. [Suspect]
     Active Substance: TRAMADOL HYDROCHLORIDE
     Indication: PRODUCT USED FOR UNKNOWN INDICATION

REACTIONS (1)
  - Drug hypersensitivity [Unknown]

NARRATIVE: CASE EVENT DATE: 20130213
